FAERS Safety Report 15857836 (Version 2)
Quarter: 2019Q2

REPORT INFORMATION
  Report Type: Report from Study
  Country: JP (occurrence: JP)
  Receive Date: 20190123
  Receipt Date: 20190410
  Transmission Date: 20190711
  Serious: Yes (Death, Life-Threatening, Hospitalization)
  Sender: FDA-Public Use
  Company Number: JP-ACTELION-A-CH2015-127361

PATIENT
  Age: 79 Year
  Sex: Female

DRUGS (16)
  1. ALDACTONE A [Concomitant]
     Active Substance: SPIRONOLACTONE
  2. URSO [Concomitant]
     Active Substance: URSODIOL
  3. WARFARIN [Concomitant]
     Active Substance: WARFARIN
  4. AZOSEMIDE [Concomitant]
     Active Substance: AZOSEMIDE
  5. FERROMIA [Concomitant]
     Active Substance: SODIUM FERROUS CITRATE
  6. BEZATOL [Concomitant]
     Active Substance: BEZAFIBRATE
  7. METHYCOBAL [Concomitant]
     Active Substance: METHYLCOBALAMIN
  8. DORNER [Concomitant]
     Active Substance: BERAPROST SODIUM
  9. OXYGEN. [Concomitant]
     Active Substance: OXYGEN
  10. FEBURIC [Concomitant]
     Active Substance: FEBUXOSTAT
  11. BROTIZOLAM [Concomitant]
     Active Substance: BROTIZOLAM
  12. REVATIO [Concomitant]
     Active Substance: SILDENAFIL CITRATE
     Dosage: UNK
  13. BIOFERMIN [Concomitant]
     Active Substance: DIETARY SUPPLEMENT\PROBIOTICS
  14. RENIVACE [Concomitant]
     Active Substance: ENALAPRIL
  15. OPSUMIT [Suspect]
     Active Substance: MACITENTAN
     Indication: PULMONARY ARTERIAL HYPERTENSION
     Dosage: 10 MG, QD
     Route: 048
     Dates: start: 20150827, end: 20171227
  16. LASIX [Concomitant]
     Active Substance: FUROSEMIDE

REACTIONS (10)
  - Gastrointestinal haemorrhage [Recovered/Resolved]
  - Cardiac failure [Recovered/Resolved]
  - Anaemia [Recovering/Resolving]
  - Hepatic cirrhosis [Fatal]
  - Haemoglobin decreased [Recovering/Resolving]
  - Red blood cell count decreased [Recovering/Resolving]
  - Oedema [Recovering/Resolving]
  - Haematocrit decreased [Recovering/Resolving]
  - Primary biliary cholangitis [Fatal]
  - Transfusion [Unknown]

NARRATIVE: CASE EVENT DATE: 20150922
